FAERS Safety Report 18696537 (Version 2)
Quarter: 2022Q1

REPORT INFORMATION
  Report Type: Other
  Country: US (occurrence: US)
  Receive Date: 20210104
  Receipt Date: 20220105
  Transmission Date: 20220423
  Serious: No
  Sender: FDA-Public Use
  Company Number: US-ROCHE-2584201

PATIENT
  Age: 56 Year
  Sex: Male

DRUGS (6)
  1. ACTIVASE [Suspect]
     Active Substance: ALTEPLASE
     Indication: COVID-19
     Dosage: 50 GM INFUSION OVER 75 MINS
     Route: 042
  2. HEPARIN [Concomitant]
     Active Substance: HEPARIN SODIUM
  3. NOREPINEPHRINE [Concomitant]
     Active Substance: NOREPINEPHRINE
     Indication: Shock
     Dosage: 50 MCG/MIN
  4. NOREPINEPHRINE [Concomitant]
     Active Substance: NOREPINEPHRINE
     Indication: Acute kidney injury
     Dosage: 7 MCG/MIN
  5. VASOPRESSIN [Concomitant]
     Active Substance: VASOPRESSIN
     Indication: Acute kidney injury
     Dosage: 2.4 UNITS/H
  6. VASOPRESSIN [Concomitant]
     Active Substance: VASOPRESSIN
     Indication: Shock

REACTIONS (3)
  - Intentional product use issue [Unknown]
  - Off label use [Unknown]
  - No adverse event [Unknown]
